FAERS Safety Report 19888362 (Version 2)
Quarter: 2021Q4

REPORT INFORMATION
  Report Type: Spontaneous
  Country: IN (occurrence: IN)
  Receive Date: 20210927
  Receipt Date: 20211020
  Transmission Date: 20220303
  Serious: Yes (Hospitalization, Other)
  Sender: FDA-Public Use
  Company Number: IN-PFIZER INC-202101206026

PATIENT
  Age: 70 Year
  Sex: Male

DRUGS (6)
  1. CRIZOTINIB [Suspect]
     Active Substance: CRIZOTINIB
     Indication: ALK gene rearrangement positive
     Dosage: 250 MG, 2X/DAY 0-0-1 (MONDAY TO THURSDAY) X CONTINUE AS ADVISED
     Route: 048
     Dates: start: 20210410
  2. DACOMITINIB [Suspect]
     Active Substance: DACOMITINIB
     Dosage: 30 MG (MONDAY TO THURSDAY) X CONTINUE AS ADVISED
  3. FLECAINIDE [Concomitant]
     Active Substance: FLECAINIDE
     Dosage: 100 MG, 2X/DAY, 1-0-1 (AFTER FOOD) TO BE CONTINUED TILL FURTHER ADVISE
  4. MET XL [Concomitant]
     Dosage: 25 MG, 1X/DAY (AFTER FOOD) TO BE CONTINUED TILL FURTHER ADVISE
  5. NEUROBION FORTE [Concomitant]
     Active Substance: CYANOCOBALAMIN\PYRIDOXINE HYDROCHLORIDE\THIAMINE DISULFIDE
     Dosage: 1-0-0 DAILY
  6. CALCIUM CARBONATE\CHOLECALCIFEROL [Concomitant]
     Active Substance: CALCIUM CARBONATE\CHOLECALCIFEROL
     Dosage: 500 MG 0-1-0 DAILY

REACTIONS (6)
  - Atrial fibrillation [Unknown]
  - Bone pain [Recovering/Resolving]
  - Cough [Recovering/Resolving]
  - Fatigue [Recovering/Resolving]
  - Hypertension [Unknown]
  - Product use issue [Recovering/Resolving]
